FAERS Safety Report 13512543 (Version 2)
Quarter: 2017Q2

REPORT INFORMATION
  Report Type: Spontaneous
  Country: CA (occurrence: CA)
  Receive Date: 20170504
  Receipt Date: 20170517
  Transmission Date: 20170830
  Serious: Yes (Other)
  Sender: FDA-Public Use
  Company Number: CA-ORION CORPORATION ORION PHARMA-TREX2017-1294

PATIENT
  Age: 33 Year
  Sex: Female

DRUGS (9)
  1. ACTEMRA [Concomitant]
     Active Substance: TOCILIZUMAB
     Route: 042
     Dates: start: 200901
  2. IMURAN [Concomitant]
     Active Substance: AZATHIOPRINE
     Dosage: 100-200 MG
     Route: 065
     Dates: start: 200506, end: 200508
  3. XELJANZ [Suspect]
     Active Substance: TOFACITINIB CITRATE
     Indication: RHEUMATOID ARTHRITIS
     Route: 048
     Dates: start: 20150618
  4. VOLTAREN EC [Concomitant]
     Route: 065
  5. SULFASALAZINE. [Concomitant]
     Active Substance: SULFASALAZINE
     Indication: RHEUMATOID ARTHRITIS
     Route: 048
     Dates: start: 200303, end: 200612
  6. REMICADE [Concomitant]
     Active Substance: INFLIXIMAB
     Route: 042
     Dates: start: 201112, end: 201407
  7. METHOTREXATE (TRADE NAME UNKNOWN) [Suspect]
     Active Substance: METHOTREXATE
     Indication: RHEUMATOID ARTHRITIS
     Dosage: 10-20 MG
     Route: 048
     Dates: start: 2004
  8. ENBREL [Concomitant]
     Active Substance: ETANERCEPT
     Indication: RHEUMATOID ARTHRITIS
     Route: 058
     Dates: start: 200601, end: 200606
  9. SIMPONI [Concomitant]
     Active Substance: GOLIMUMAB
     Dosage: ONCE
     Route: 058
     Dates: start: 201012, end: 201012

REACTIONS (1)
  - Rheumatoid arthritis [Not Recovered/Not Resolved]
